FAERS Safety Report 8815357 (Version 1)
Quarter: 2012Q4

REPORT INFORMATION
  Report Type: 
  Country: US (occurrence: US)
  Receive Date: 20120928
  Receipt Date: 20120928
  Transmission Date: 20130627
  Serious: Yes (Other)
  Sender: FDA-Public Use
  Company Number: US-ASTRAZENECA-2012SE73625

PATIENT
  Age: 83 Year
  Sex: Female

DRUGS (17)
  1. IRESSA [Suspect]
     Route: 048
  2. PRILOSEC [Suspect]
     Route: 048
  3. VITAMIN B12 [Concomitant]
     Dosage: 1000 MCG/ ML, INJECT 1 ML TO AREA AS DIRECTED EVERY 30 DAYS
  4. FLAXSEED OIL [Concomitant]
     Dosage: TAKE BY MOUTH DAILY
  5. ASPIRIN [Concomitant]
     Route: 048
  6. PHENERGAN W/ CODEINE [Concomitant]
     Indication: COUGH
     Dosage: 6.25/ 10 MG/ 5ML  BY MOUTH EVERY 6 HOURS
     Route: 048
  7. CARDIZEM [Concomitant]
     Route: 048
  8. VITAMIN C [Concomitant]
     Route: 048
  9. MEGACE [Concomitant]
     Dosage: 40 MG/ ML, take 5-20 ML TITRATED TO APPETITE IMPROVEMENT
     Route: 048
  10. ZINC [Concomitant]
     Route: 048
  11. MAXAIR [Concomitant]
     Dosage: 200 MCG, INHALATION INHALER INHALE BY MOUTH AS NEEDED
  12. FERROUS SULFATE [Concomitant]
     Route: 048
  13. MULTIVITAMIN [Concomitant]
     Route: 048
  14. OMEGA 3-6-9 [Concomitant]
     Dosage: WITH LUNCH
     Route: 048
  15. CALCIUM [Concomitant]
     Route: 048
  16. ADVAIR [Concomitant]
     Dosage: 500/ 60 MCG INHALATION DISK, 1 PUFF DAILY
  17. LOPRESSOR [Concomitant]

REACTIONS (10)
  - Lung carcinoma cell type unspecified stage 0 [Unknown]
  - Multiple fractures [Unknown]
  - Dyspnoea [Unknown]
  - Bronchitis [Unknown]
  - Pain [Unknown]
  - Arthritis [Unknown]
  - Neuropathy peripheral [Unknown]
  - Arthralgia [Unknown]
  - Hypoaesthesia [Unknown]
  - Diarrhoea [Unknown]
